FAERS Safety Report 17823266 (Version 1)
Quarter: 2020Q2

REPORT INFORMATION
  Report Type: Spontaneous
  Country: US (occurrence: US)
  Receive Date: 20200522
  Receipt Date: 20200522
  Transmission Date: 20200714
  Serious: Yes (Hospitalization)
  Sender: FDA-Public Use
  Company Number: None

PATIENT
  Age: 77 Year
  Sex: Male

DRUGS (1)
  1. NIVOLUMAB (NIVOLUMAB 10MG/ML INJ, SOLN) [Suspect]
     Active Substance: NIVOLUMAB
     Dosage: ?          OTHER ROUTE:IV?
     Route: 042
     Dates: start: 20200116, end: 20200116

REACTIONS (5)
  - Visual impairment [None]
  - Fatigue [None]
  - Dyspnoea [None]
  - Vision blurred [None]
  - Syncope [None]

NARRATIVE: CASE EVENT DATE: 20200218
